FAERS Safety Report 8519098-4 (Version None)
Quarter: 2012Q3

REPORT INFORMATION
  Report Type: 
  Country: None (occurrence: None)
  Receive Date: 20120712
  Receipt Date: 20120712
  Transmission Date: 20120928
  Serious: Yes (Hospitalization)
  Sender: FDA-Public Use
  Company Number: None

PATIENT
  Sex: Female
  Weight: 83.6 kg

DRUGS (1)
  1. ALFA 2 INTERFERON 2B [Suspect]
     Dosage: 720 MILLION IU
     Dates: end: 20120612

REACTIONS (1)
  - NAUSEA [None]
